FAERS Safety Report 6223315-3 (Version None)
Quarter: 2009Q2

REPORT INFORMATION
  Report Type: 
  Country: None (occurrence: None)
  Receive Date: 20090611
  Receipt Date: 20090602
  Transmission Date: 20091009
  Serious: No
  Sender: FDA-Public Use
  Company Number: US-BAXTER-2009BH004851

PATIENT

DRUGS (1)
  1. HEPARIN SODIUM 1,000 UNITS AND SODIUM CHLORIDE 0.9% [Suspect]
     Indication: INTRAVENOUS CATHETER MANAGEMENT
     Route: 065

REACTIONS (1)
  - CATHETER THROMBOSIS [None]
